FAERS Safety Report 14477604 (Version 1)
Quarter: 2018Q1

REPORT INFORMATION
  Report Type: Report from Study
  Country: US (occurrence: US)
  Receive Date: 20180201
  Receipt Date: 20180201
  Transmission Date: 20180509
  Serious: No
  Sender: FDA-Public Use
  Company Number: US-EXELIXIS-CABO-17009345

PATIENT
  Age: 72 Year
  Sex: Male

DRUGS (21)
  1. CLOTRIMAZOLE. [Concomitant]
     Active Substance: CLOTRIMAZOLE
  2. HYDROCODONE [Concomitant]
     Active Substance: HYDROCODONE
  3. CLINDAMYCIN PHOSPHATE. [Concomitant]
     Active Substance: CLINDAMYCIN PHOSPHATE
  4. BENEFIBER [Concomitant]
     Active Substance: STARCH, WHEAT
  5. AMLODIPINE BESYLATE. [Concomitant]
     Active Substance: AMLODIPINE BESYLATE
  6. ZOFRAN [Concomitant]
     Active Substance: ONDANSETRON HYDROCHLORIDE
  7. CAL-MAG [Concomitant]
  8. FISH OIL W/VITAMIN D NOS [Concomitant]
  9. CYANOCOBALAMIN. [Concomitant]
     Active Substance: CYANOCOBALAMIN
  10. BENZONATATE. [Concomitant]
     Active Substance: BENZONATATE
  11. CABOMETYX [Suspect]
     Active Substance: CABOZANTINIB S-MALATE
     Indication: RENAL CANCER
     Dosage: 60 MG, QD
     Route: 048
     Dates: start: 20170511
  12. FINASTERIDE. [Concomitant]
     Active Substance: FINASTERIDE
  13. VITAMIN D3 [Concomitant]
     Active Substance: CHOLECALCIFEROL
  14. GUAIFENESIN. [Concomitant]
     Active Substance: GUAIFENESIN
  15. METOPROLOL TARTRATE. [Concomitant]
     Active Substance: METOPROLOL TARTRATE
  16. AVODART [Concomitant]
     Active Substance: DUTASTERIDE
  17. TRIAMCINOLONE ACETONIDE. [Concomitant]
     Active Substance: TRIAMCINOLONE ACETONIDE
  18. LEVOTHYROXINE SODIUM. [Concomitant]
     Active Substance: LEVOTHYROXINE SODIUM
  19. IMODIUM AD [Concomitant]
     Active Substance: LOPERAMIDE HYDROCHLORIDE
  20. ZUPLENZ [Concomitant]
     Active Substance: ONDANSETRON
  21. CHLORHEXIDINE GLUCONATE. [Concomitant]
     Active Substance: CHLORHEXIDINE GLUCONATE

REACTIONS (5)
  - Diarrhoea [Unknown]
  - Dehydration [Unknown]
  - Decreased appetite [Unknown]
  - Blood sodium decreased [Unknown]
  - Rash [Unknown]

NARRATIVE: CASE EVENT DATE: 20170601
